FAERS Safety Report 25213649 (Version 1)
Quarter: 2025Q2

REPORT INFORMATION
  Report Type: Spontaneous
  Country: US (occurrence: None)
  Receive Date: 20250417
  Receipt Date: 20250417
  Transmission Date: 20250717
  Serious: Yes (Hospitalization)
  Sender: FDA-CTU
  Company Number: None

PATIENT
  Age: 78 Year
  Sex: Male
  Weight: 69 kg

DRUGS (1)
  1. IOHEXOL [Suspect]
     Active Substance: IOHEXOL
     Indication: X-ray with contrast
     Route: 042
     Dates: start: 20250123, end: 20250123

REACTIONS (3)
  - Acute kidney injury [None]
  - Blood creatinine increased [None]
  - Contrast media reaction [None]

NARRATIVE: CASE EVENT DATE: 20250123
